FAERS Safety Report 10688276 (Version 1)
Quarter: 2014Q4

REPORT INFORMATION
  Report Type: Spontaneous
  Country: None (occurrence: None)
  Receive Date: 20141231
  Receipt Date: 20141231
  Transmission Date: 20150529
  Serious: Yes (Hospitalization)
  Sender: FDA-Public Use
  Company Number: RAP-0293-2014

PATIENT
  Age: 17 Year
  Sex: Female
  Weight: 54.1 kg

DRUGS (12)
  1. L-CARNITINE (UNKNOWN) [Concomitant]
  2. ASPIRIN (UNKNOWN) [Concomitant]
     Active Substance: ASPIRIN
  3. TACROLIMUS (UNKNOWN) [Concomitant]
     Active Substance: TACROLIMUS
  4. LANSOPRAZOLE (UNKNOWN) [Concomitant]
     Active Substance: LANSOPRAZOLE
  5. PRENATAL VITAMINS [Concomitant]
     Active Substance: VITAMINS
  6. FLUCONAZOLE (UNKNOWN) [Concomitant]
     Active Substance: FLUCONAZOLE
  7. OXYCODONE (UNKNOWN) [Concomitant]
     Active Substance: OXYCODONE
  8. VALCYTE (VALGANCICLOVIR) [Concomitant]
  9. MYCOPHENOLATE (UNKNOWN) [Concomitant]
  10. PROCYSBI DELAYED-RELEASE [Suspect]
     Active Substance: CYSTEAMINE BITARTRATE
     Indication: CYSTINOSIS
     Dosage: 1200 MG  (600 MG, 1 IN 12 HR),  PER ORAL
     Route: 048
     Dates: start: 20130926
  11. SERTRALINE [Concomitant]
     Active Substance: SERTRALINE HYDROCHLORIDE
  12. SULFAMETHOXAZOLE/TRIMETHOPRIM (UNKNOWN) [Concomitant]

REACTIONS (1)
  - Renal transplant [None]

NARRATIVE: CASE EVENT DATE: 20141125
